FAERS Safety Report 12048373 (Version 1)
Quarter: 2016Q1

REPORT INFORMATION
  Report Type: Report from Study
  Country: US (occurrence: US)
  Receive Date: 20160208
  Receipt Date: 20160208
  Transmission Date: 20160526
  Serious: Yes (Hospitalization)
  Sender: FDA-Public Use
  Company Number: US-ABBVIE-15P-163-1376032-00

PATIENT
  Age: 61 Year
  Sex: Female

DRUGS (8)
  1. LIALDA [Concomitant]
     Active Substance: MESALAMINE
     Indication: PRODUCT USED FOR UNKNOWN INDICATION
  2. HUMIRA [Suspect]
     Active Substance: ADALIMUMAB
     Route: 065
     Dates: start: 2015
  3. HUMIRA [Suspect]
     Active Substance: ADALIMUMAB
     Indication: COLITIS ULCERATIVE
     Dosage: LOADING DOSE
     Route: 065
     Dates: start: 20150403, end: 20150403
  4. TOVIAZ [Concomitant]
     Active Substance: FESOTERODINE FUMARATE
     Indication: PRODUCT USED FOR UNKNOWN INDICATION
  5. PREDNISONE. [Suspect]
     Active Substance: PREDNISONE
     Indication: PRODUCT USED FOR UNKNOWN INDICATION
     Dosage: TAPERING DOSE EVERY 14 DAYS
     Route: 065
     Dates: start: 201505
  6. HUMIRA [Suspect]
     Active Substance: ADALIMUMAB
     Dosage: LOADING DOSE
     Route: 065
     Dates: start: 2015, end: 2015
  7. PREDNISONE. [Suspect]
     Active Substance: PREDNISONE
     Dosage: TAPERING DOSE EVERY 14 DAYS
     Route: 065
     Dates: start: 2015
  8. CELEBREX [Concomitant]
     Active Substance: CELECOXIB
     Indication: PRODUCT USED FOR UNKNOWN INDICATION

REACTIONS (29)
  - Fatigue [Not Recovered/Not Resolved]
  - Pain [Not Recovered/Not Resolved]
  - Fatigue [Unknown]
  - Joint swelling [Unknown]
  - Sleep disorder [Unknown]
  - Skin discolouration [Not Recovered/Not Resolved]
  - Scab [Not Recovered/Not Resolved]
  - Varicose vein [Unknown]
  - Haematochezia [Unknown]
  - Increased tendency to bruise [Not Recovered/Not Resolved]
  - Depression [Not Recovered/Not Resolved]
  - Pain in extremity [Not Recovered/Not Resolved]
  - Feeling abnormal [Not Recovered/Not Resolved]
  - Post procedural haemorrhage [Unknown]
  - Flight of ideas [Unknown]
  - Flatulence [Not Recovered/Not Resolved]
  - Muscular weakness [Unknown]
  - Vision blurred [Unknown]
  - Contusion [Not Recovered/Not Resolved]
  - Pain in extremity [Unknown]
  - Colitis ulcerative [Not Recovered/Not Resolved]
  - Spinal osteoarthritis [Unknown]
  - Depressed mood [Not Recovered/Not Resolved]
  - Headache [Unknown]
  - Pain [Unknown]
  - Rash macular [Not Recovered/Not Resolved]
  - Neck pain [Not Recovered/Not Resolved]
  - Suicidal ideation [Not Recovered/Not Resolved]
  - Drug ineffective [Not Recovered/Not Resolved]

NARRATIVE: CASE EVENT DATE: 2015
